FAERS Safety Report 19454649 (Version 1)
Quarter: 2021Q2

REPORT INFORMATION
  Report Type: Report from Study
  Country: FR (occurrence: FR)
  Receive Date: 20210623
  Receipt Date: 20210623
  Transmission Date: 20210717
  Serious: Yes (Life-Threatening, Hospitalization)
  Sender: FDA-Public Use
  Company Number: FR-MYLANLABS-2021M1036627

PATIENT
  Age: 74 Year
  Sex: Male

DRUGS (8)
  1. TREMELIMUMAB. [Interacting]
     Active Substance: TREMELIMUMAB
     Indication: CHOLANGIOCARCINOMA
  2. TREMELIMUMAB. [Interacting]
     Active Substance: TREMELIMUMAB
     Indication: BILIARY NEOPLASM
     Dosage: 75 MILLIGRAM, CYCLETREMELIMUMAB 75 MG BY IV INFUSION ON DAY1 FOR THE FIRST 4 CYCLES ADMINISTERED..
     Route: 042
  3. METHYLPREDNISOLONE. [Concomitant]
     Active Substance: METHYLPREDNISOLONE
     Indication: PREMEDICATION
     Dosage: UNK, CYCLEADMINISTERED 30 MIN AFTER THE END OF THE DURVALUMAB INFUSION
     Route: 042
  4. DURVALUMAB. [Interacting]
     Active Substance: DURVALUMAB
     Indication: BILIARY NEOPLASM
     Dosage: 1500 MILLIGRAM, CYCLEDURVALUMAB 1500 MG OVER 60 MIN BY IV INFUSION ON DAY 1 OF EACH CYCLE..
     Route: 042
  5. PACLITAXEL. [Suspect]
     Active Substance: PACLITAXEL
     Indication: BILIARY NEOPLASM
     Dosage: 80 MILLIGRAM/SQ. METER, CYCLEWEEKLY PACLITAXEL 80 MG/M 2 BY IV INFUSION ON DAY1, DAY8, AND DAY 15..
     Route: 042
  6. DIPHENHYDRAMINE. [Concomitant]
     Active Substance: DIPHENHYDRAMINE
     Indication: PREMEDICATION
     Dosage: 50 MILLIGRAM, CYCLE ADMINISTERED 30 MIN AFTER THE END OF THE DURVALUMAB INFUSION
     Route: 042
  7. PACLITAXEL. [Suspect]
     Active Substance: PACLITAXEL
     Indication: CHOLANGIOCARCINOMA
  8. DURVALUMAB. [Interacting]
     Active Substance: DURVALUMAB
     Indication: CHOLANGIOCARCINOMA

REACTIONS (4)
  - Lung disorder [Recovered/Resolved]
  - Pneumonia [Recovered/Resolved]
  - Septic shock [Recovered/Resolved]
  - Interstitial lung disease [Recovered/Resolved]
